FAERS Safety Report 9219531 (Version 1)
Quarter: 2013Q2

REPORT INFORMATION
  Report Type: Report from Study
  Country: CA (occurrence: CA)
  Receive Date: 20130409
  Receipt Date: 20130409
  Transmission Date: 20140414
  Serious: Yes (Other)
  Sender: FDA-Public Use
  Company Number: CA-ROCHE-1104742

PATIENT
  Age: 37 Year
  Sex: Female

DRUGS (9)
  1. ZELBORAF [Suspect]
     Indication: METASTATIC MALIGNANT MELANOMA
     Route: 048
     Dates: start: 20120810
  2. ZELBORAF [Suspect]
     Route: 048
     Dates: start: 20120815
  3. ZELBORAF [Suspect]
     Route: 048
     Dates: start: 20120822
  4. ZELBORAF [Suspect]
     Route: 048
     Dates: start: 201208
  5. PMS-DEXAMETHASONE [Concomitant]
     Indication: PRODUCT USED FOR UNKNOWN INDICATION
     Route: 065
     Dates: end: 201208
  6. APO-RANITIDINE [Concomitant]
     Indication: GASTROOESOPHAGEAL REFLUX DISEASE
  7. VENTOLIN [Concomitant]
     Indication: PRODUCT USED FOR UNKNOWN INDICATION
     Route: 065
  8. TYLENOL [Concomitant]
     Indication: HEADACHE
     Route: 065
  9. APO-SERTRALINE [Concomitant]
     Indication: DEPRESSION
     Route: 065

REACTIONS (3)
  - Local swelling [Recovered/Resolved]
  - Nausea [Unknown]
  - Disease progression [Unknown]
